FAERS Safety Report 5409260-1 (Version None)
Quarter: 2007Q3

REPORT INFORMATION
  Report Type: 
  Country: None (occurrence: None)
  Receive Date: 20070809
  Receipt Date: 20070808
  Transmission Date: 20080115
  Serious: Yes (Other)
  Sender: FDA-Public Use
  Company Number: PHNU2007DE02600

PATIENT
  Sex: Female

DRUGS (6)
  1. VOLTAREN [Suspect]
     Indication: PAIN
  2. ENCEPUR [Suspect]
  3. IBUPROFEN [Concomitant]
  4. PRETERAX [Concomitant]
  5. INDIVINA [Concomitant]
  6. SIFROL [Concomitant]
     Dosage: 0.5 DF, QD
     Route: 048

REACTIONS (3)
  - HYPOAESTHESIA [None]
  - MONOPARESIS [None]
  - MYALGIA [None]
